FAERS Safety Report 10158298 (Version 1)
Quarter: 2014Q2

REPORT INFORMATION
  Report Type: Report from Study
  Country: NZ (occurrence: NZ)
  Receive Date: 20140507
  Receipt Date: 20140507
  Transmission Date: 20141212
  Serious: Yes (Death, Other)
  Sender: FDA-Public Use
  Company Number: NZ-PFIZER INC-2014122654

PATIENT
  Age: 62 Year
  Sex: Female

DRUGS (2)
  1. LINCOMYCIN HCL [Suspect]
     Indication: DIARRHOEA
     Dosage: 600 MG, 2X/DAY
     Route: 030
  2. LINCOMYCIN HCL [Suspect]
     Dosage: 300 MG, 2X/DAY
     Route: 048

REACTIONS (3)
  - Pseudomembranous colitis [Fatal]
  - Bacterial toxaemia [Fatal]
  - Dehydration [Fatal]
